FAERS Safety Report 22303655 (Version 1)
Quarter: 2023Q2

REPORT INFORMATION
  Report Type: Report from Study
  Country: US (occurrence: US)
  Receive Date: 20230510
  Receipt Date: 20230510
  Transmission Date: 20230722
  Serious: Yes (Other)
  Sender: FDA-Public Use
  Company Number: US-002147023-NVSC2023US102100

PATIENT
  Sex: Female

DRUGS (2)
  1. KISQALI [Suspect]
     Active Substance: RIBOCICLIB
     Indication: Breast cancer
     Dosage: 600 MG, QD
     Route: 048
     Dates: start: 202207
  2. KISQALI [Suspect]
     Active Substance: RIBOCICLIB
     Dosage: 400 MG, QD
     Route: 048

REACTIONS (8)
  - Neoplasm malignant [Unknown]
  - Skin disorder [Unknown]
  - Skin haemorrhage [Unknown]
  - Throat irritation [Unknown]
  - Hepatic enzyme increased [Unknown]
  - White blood cell count decreased [Unknown]
  - Fatigue [Unknown]
  - Back pain [Unknown]
